FAERS Safety Report 21668304 (Version 1)
Quarter: 2022Q4

REPORT INFORMATION
  Report Type: Spontaneous
  Country: ES (occurrence: ES)
  Receive Date: 20221201
  Receipt Date: 20221201
  Transmission Date: 20230113
  Serious: Yes (Hospitalization, Other)
  Sender: FDA-Public Use
  Company Number: None

PATIENT
  Age: 63 Year
  Sex: Male

DRUGS (1)
  1. RAPAMUNE [Suspect]
     Active Substance: SIROLIMUS
     Indication: Renal transplant
     Dosage: 1/24 H
     Route: 048
     Dates: start: 20211020, end: 20220105

REACTIONS (6)
  - Pulmonary embolism [Recovered/Resolved]
  - Gynaecomastia [Unknown]
  - Aortic arteriosclerosis [Unknown]
  - Myocardial calcification [Unknown]
  - Hiatus hernia [Unknown]
  - Osteoarthritis [Unknown]

NARRATIVE: CASE EVENT DATE: 20220104
